FAERS Safety Report 4486387-2 (Version None)
Quarter: 2004Q4

REPORT INFORMATION
  Report Type: 
  Country: None (occurrence: None)
  Receive Date: 20041026
  Receipt Date: 20041026
  Transmission Date: 20050328
  Serious: Yes (Hospitalization)
  Sender: FDA-Public Use
  Company Number: None

PATIENT
  Age: 79 Year
  Sex: Female

DRUGS (1)
  1. IOHEXOL  -OMNIPAQUE- [Suspect]
     Indication: ANGIOGRAM
     Dosage: 150 ML   2 DOSES   INTRAVENOU
     Route: 042
     Dates: start: 20040331, end: 20040331

REACTIONS (5)
  - BLOOD CREATININE INCREASED [None]
  - HAEMODIALYSIS [None]
  - HYPERKALAEMIA [None]
  - OLIGURIA [None]
  - VASCULAR OCCLUSION [None]
